FAERS Safety Report 23343113 (Version 1)
Quarter: 2023Q4

REPORT INFORMATION
  Report Type: Spontaneous
  Country: US (occurrence: US)
  Receive Date: 20231227
  Receipt Date: 20231227
  Transmission Date: 20240110
  Serious: Yes (Other)
  Sender: FDA-Public Use
  Company Number: US-FreseniusKabi-FK202321049

PATIENT
  Age: 63 Year
  Sex: Female
  Weight: 86 kg

DRUGS (1)
  1. POLOCAINE-MPF [Suspect]
     Active Substance: MEPIVACAINE HYDROCHLORIDE
     Indication: Spinal anaesthesia
     Dosage: 20 MG/ML 2 PERCENT SOLUTION, ?FREQUENCY: ONCE
     Route: 037
     Dates: start: 20231205, end: 20231205

REACTIONS (3)
  - Hypotension [Recovered/Resolved]
  - Off label use [None]
  - Off label use [None]

NARRATIVE: CASE EVENT DATE: 20231205
